FAERS Safety Report 12987380 (Version 1)
Quarter: 2016Q4

REPORT INFORMATION
  Report Type: Spontaneous
  Country: US (occurrence: US)
  Receive Date: 20161129
  Receipt Date: 20161129
  Transmission Date: 20170207
  Serious: Yes (Hospitalization)
  Sender: FDA-Public Use
  Company Number: None

PATIENT
  Age: 59 Year
  Sex: Male
  Weight: 107.2 kg

DRUGS (2)
  1. DIVALPROEX [Suspect]
     Active Substance: DIVALPROEX SODIUM
     Indication: BIPOLAR I DISORDER
     Dates: start: 20160308
  2. TOPIRAMATE. [Suspect]
     Active Substance: TOPIRAMATE
     Indication: TREMOR
     Route: 048
     Dates: start: 20160623, end: 20161003

REACTIONS (5)
  - Confusional state [None]
  - Drug interaction [None]
  - Encephalopathy [None]
  - Encephalitis [None]
  - Mental status changes [None]

NARRATIVE: CASE EVENT DATE: 20161005
